FAERS Safety Report 7124449-1 (Version None)
Quarter: 2010Q4

REPORT INFORMATION
  Report Type: 
  Country: None (occurrence: None)
  Receive Date: 20101126
  Receipt Date: 20101116
  Transmission Date: 20110411
  Serious: Yes (Other)
  Sender: FDA-Public Use
  Company Number: US-SANOFI-AVENTIS-2010SA054149

PATIENT
  Age: 73 Year
  Sex: Male
  Weight: 91.62 kg

DRUGS (15)
  1. MULTAQ [Suspect]
     Indication: ATRIAL FLUTTER
     Route: 048
     Dates: start: 20100528, end: 20100622
  2. MULTAQ [Suspect]
     Indication: ATRIAL FIBRILLATION
     Route: 048
     Dates: start: 20100528, end: 20100622
  3. LIPITOR [Concomitant]
     Dates: start: 20070325
  4. PLAVIX [Concomitant]
     Route: 048
     Dates: start: 20070325
  5. WARFARIN [Concomitant]
     Dates: start: 20080101
  6. INSULIN [Concomitant]
  7. INVESTIGATIONAL DRUG [Concomitant]
     Indication: ANTICOAGULANT THERAPY
  8. AVAPRO [Concomitant]
     Indication: BLOOD PRESSURE
  9. JANUVIA [Concomitant]
  10. SYNTHROID [Concomitant]
     Indication: THYROID DISORDER
  11. COUMADIN [Concomitant]
     Dosage: ACCORDING TO INTERNATIONAL NORMALIZED RATIO (INR)
  12. ALLEGRA [Concomitant]
     Route: 048
  13. VIAGRA [Concomitant]
  14. NITROGLYCERIN ^SLOVAKOFARMA^ [Concomitant]
     Route: 060
  15. FUROSEMIDE [Concomitant]
     Dosage: 20 MG DAILY FOR 3 DAYS OF WEEK AND 10 MG DAILY FOR 4 DAYS OF WEEK.

REACTIONS (5)
  - ATRIAL FLUTTER [None]
  - DIARRHOEA [None]
  - DIZZINESS [None]
  - NODAL RHYTHM [None]
  - RASH PRURITIC [None]
